FAERS Safety Report 4623005-4 (Version None)
Quarter: 2005Q1

REPORT INFORMATION
  Report Type: 
  Country: None (occurrence: None)
  Receive Date: 20050329
  Receipt Date: 20050315
  Transmission Date: 20050727
  Serious: Yes (Hospitalization)
  Sender: FDA-Public Use
  Company Number: 2004-BP-08345NB

PATIENT
  Age: 87 Year
  Sex: Male

DRUGS (3)
  1. BI-SIFROL TABLETS (PRAMIPEXOLE DIHYDROCHLORIDE) (TA) [Suspect]
     Indication: PARKINSON'S DISEASE
     Dosage: 0.5 MG PO
     Route: 048
     Dates: start: 20040824, end: 20040907
  2. EXCEGRAN (ZONISAMIDE) [Suspect]
     Indication: PARKINSON'S DISEASE
     Dosage: 100 MG PO
     Route: 048
     Dates: start: 20040816, end: 20040907
  3. SINEMET [Suspect]
     Indication: PARKINSON'S DISEASE
     Dosage: 300 MG PO
     Route: 048
     Dates: start: 20040816, end: 20040907

REACTIONS (1)
  - GRANULOCYTOPENIA [None]
